FAERS Safety Report 7606778-8 (Version None)
Quarter: 2011Q3

REPORT INFORMATION
  Report Type: 
  Country: None (occurrence: None)
  Receive Date: 20110713
  Receipt Date: 20110707
  Transmission Date: 20111222
  Serious: Yes (Other)
  Sender: FDA-Public Use
  Company Number: US-GLAXOSMITHKLINE-A0609586A

PATIENT
  Age: 59 Year
  Sex: Female

DRUGS (16)
  1. NOVOLOG [Concomitant]
     Dosage: 40UNIT TWICE PER DAY
  2. PAXIL CR [Suspect]
     Indication: ANXIETY
     Dosage: 37.5MG PER DAY
     Route: 048
     Dates: start: 19970101
  3. AVANDIA [Concomitant]
  4. HYDROCHLOROTHIAZIDE [Concomitant]
     Indication: CARDIAC DISORDER
     Dosage: 12.5MG PER DAY
     Route: 048
  5. AMARYL [Concomitant]
  6. LOPRESSOR [Concomitant]
  7. CRESTOR [Concomitant]
     Indication: BLOOD CHOLESTEROL INCREASED
     Dosage: 10MG PER DAY
     Route: 048
  8. PAXIL CR [Suspect]
     Indication: GENERALISED ANXIETY DISORDER
     Dosage: 25MG PER DAY
     Route: 048
     Dates: start: 20060523
  9. PAROXETINE HCL [Suspect]
     Indication: ANXIETY
     Dosage: 37.5MG UNKNOWN
     Route: 048
  10. XALATAN [Concomitant]
     Dosage: 2DROP PER DAY
  11. ZOCOR [Concomitant]
  12. XANAX [Concomitant]
     Indication: ANXIETY
  13. BYSTOLIC [Concomitant]
     Indication: BLOOD PRESSURE INCREASED
     Dosage: 10MG PER DAY
     Route: 048
  14. PRISTIQ [Suspect]
     Indication: ANXIETY
     Route: 065
     Dates: start: 20110301, end: 20110401
  15. METFORMIN HCL [Concomitant]
     Indication: DIABETES MELLITUS
     Dosage: 1000MG TWICE PER DAY
     Route: 048
  16. INSULIN [Concomitant]

REACTIONS (11)
  - MENTAL DISORDER [None]
  - PANIC ATTACK [None]
  - HEART RATE INCREASED [None]
  - ANXIETY [None]
  - TENSION [None]
  - TREMOR [None]
  - SUICIDAL IDEATION [None]
  - DRUG INEFFECTIVE [None]
  - DYSACUSIS [None]
  - TINNITUS [None]
  - PRODUCT QUALITY ISSUE [None]
